FAERS Safety Report 16933242 (Version 3)
Quarter: 2019Q4

REPORT INFORMATION
  Report Type: Spontaneous
  Country: JP (occurrence: JP)
  Receive Date: 20191018
  Receipt Date: 20191111
  Transmission Date: 20200122
  Serious: Yes (Other)
  Sender: FDA-Public Use
  Company Number: JP-GLAXOSMITHKLINE-JP2019JPN187271

PATIENT
  Age: 96 Year
  Sex: Female
  Weight: 47 kg

DRUGS (1)
  1. VALTREX [Suspect]
     Active Substance: VALACYCLOVIR HYDROCHLORIDE
     Dosage: 500 MG, UNK
     Route: 048
     Dates: start: 201809, end: 201809

REACTIONS (3)
  - Neurosis [Unknown]
  - Altered state of consciousness [Unknown]
  - Acute kidney injury [Unknown]
